FAERS Safety Report 4869253-X (Version None)
Quarter: 2005Q4

REPORT INFORMATION
  Report Type: 
  Country: None (occurrence: None)
  Receive Date: 20051230
  Receipt Date: 20051219
  Transmission Date: 20060501
  Serious: Yes (Death, Hospitalization)
  Sender: FDA-Public Use
  Company Number: GB-JNJFOC-20051004285

PATIENT
  Age: 1 Year
  Sex: Male

DRUGS (4)
  1. CAELYX [Suspect]
     Indication: ACUTE LYMPHOCYTIC LEUKAEMIA
     Dosage: X 2 DOSES
     Route: 065
  2. ASPARAGINASE [Suspect]
     Indication: ACUTE LYMPHOCYTIC LEUKAEMIA
     Dosage: 1000 (UNIT)/M2-ONCE
     Route: 065
  3. VINCRISTINE SULFATE [Suspect]
     Indication: ACUTE LYMPHOCYTIC LEUKAEMIA
     Dosage: X 2 DOSES
     Route: 065
  4. DEXAMETHASONE [Suspect]
     Indication: ACUTE LYMPHOCYTIC LEUKAEMIA
     Route: 048

REACTIONS (9)
  - ADENOVIRAL HEPATITIS [None]
  - DEPRESSED LEVEL OF CONSCIOUSNESS [None]
  - GASTROENTERITIS PSEUDOMONAS [None]
  - GENERAL PHYSICAL HEALTH DETERIORATION [None]
  - HEPATIC ENCEPHALOPATHY [None]
  - HEPATOMEGALY [None]
  - HERPES SIMPLEX [None]
  - RENAL FAILURE [None]
  - STAPHYLOCOCCAL INFECTION [None]
